FAERS Safety Report 17044527 (Version 1)
Quarter: 2019Q4

REPORT INFORMATION
  Report Type: Other
  Country: US (occurrence: US)
  Receive Date: 20191118
  Receipt Date: 20191118
  Transmission Date: 20200122
  Serious: Yes (Hospitalization)
  Sender: FDA-Public Use
  Company Number: US-LEADIANT BIOSCIENCES, INC.-2019STPI000401

PATIENT

DRUGS (8)
  1. REVCOVI [Suspect]
     Active Substance: ELAPEGADEMASE-LVLR
     Indication: PNEUMONIA
     Dosage: 2.4MG/1.5ML
     Route: 030
     Dates: start: 20190125
  2. TOBRAMYCIN. [Concomitant]
     Active Substance: TOBRAMYCIN
  3. BACTRIM [Concomitant]
     Active Substance: SULFAMETHOXAZOLE\TRIMETHOPRIM
  4. PREVACID [Concomitant]
     Active Substance: LANSOPRAZOLE
  5. LABETALOL [Concomitant]
     Active Substance: LABETALOL\LABETALOL HYDROCHLORIDE
  6. INCRUSE ELLIPTA [Concomitant]
     Active Substance: UMECLIDINIUM BROMIDE
  7. SODIUM CITRATE. [Concomitant]
     Active Substance: SODIUM CITRATE
  8. ZYVOX [Concomitant]
     Active Substance: LINEZOLID

REACTIONS (2)
  - Cough [Not Recovered/Not Resolved]
  - Pneumonia [Not Recovered/Not Resolved]

NARRATIVE: CASE EVENT DATE: 20190807
